FAERS Safety Report 22637940 (Version 1)
Quarter: 2023Q2

REPORT INFORMATION
  Report Type: Report from Study
  Country: GB (occurrence: GB)
  Receive Date: 20230626
  Receipt Date: 20230626
  Transmission Date: 20230722
  Serious: Yes (Hospitalization)
  Sender: FDA-Public Use
  Company Number: GB-ABBVIE-5279573

PATIENT
  Age: 57 Year
  Sex: Female

DRUGS (11)
  1. HUMIRA [Suspect]
     Active Substance: ADALIMUMAB
     Indication: Ankylosing spondylitis
     Dosage: FORM STRENGTH WAS 40 MILLIGRAMS
     Route: 058
     Dates: start: 20230427
  2. HUMIRA [Suspect]
     Active Substance: ADALIMUMAB
     Dosage: FORM STRENGTH WAS 40 MILLIGRAMS
     Route: 058
     Dates: start: 2017, end: 202304
  3. ACETAMINOPHEN [Concomitant]
     Active Substance: ACETAMINOPHEN
     Indication: Pain
     Route: 048
  4. AMLODIPINE [Concomitant]
     Active Substance: AMLODIPINE BESYLATE
     Indication: Hypertension
     Route: 048
  5. ETORICOXIB [Concomitant]
     Active Substance: ETORICOXIB
     Indication: Analgesic intervention supportive therapy
     Route: 048
  6. CODEINE [Concomitant]
     Active Substance: CODEINE
     Indication: Pain
     Route: 048
  7. ESTRADIOL TRANSDERMAL SYSTEM [Concomitant]
     Active Substance: ESTRADIOL
     Indication: Product used for unknown indication
  8. AMITRIPTYLINE [Concomitant]
     Active Substance: AMITRIPTYLINE
     Indication: Pain
     Route: 048
  9. LANSOPRAZOLE [Concomitant]
     Active Substance: LANSOPRAZOLE
     Indication: Prophylaxis
     Route: 048
  10. UTROGESTAN [Concomitant]
     Active Substance: PROGESTERONE
     Indication: Hormone replacement therapy
     Route: 048
  11. Evorel (Estradiol patch) [Concomitant]
     Indication: Hormone replacement therapy
     Route: 062

REACTIONS (15)
  - Pneumonia [Recovered/Resolved]
  - Illness [Recovered/Resolved]
  - Lethargy [Unknown]
  - Pleural effusion [Recovered/Resolved]
  - Atelectasis [Unknown]
  - COVID-19 [Unknown]
  - Asthma [Unknown]
  - Axial spondyloarthritis [Unknown]
  - Pleural effusion [Recovering/Resolving]
  - Body temperature fluctuation [Unknown]
  - Chest pain [Unknown]
  - Sinusitis [Unknown]
  - Ankylosing spondylitis [Unknown]
  - Pneumonia [Unknown]
  - Dyspnoea [Unknown]

NARRATIVE: CASE EVENT DATE: 20220301
